FAERS Safety Report 7375417-6 (Version None)
Quarter: 2011Q1

REPORT INFORMATION
  Report Type: 
  Country: None (occurrence: None)
  Receive Date: 20110325
  Receipt Date: 20110313
  Transmission Date: 20110831
  Serious: Yes (Hospitalization)
  Sender: FDA-Public Use
  Company Number: PHHY2011DE21035

PATIENT
  Sex: Female

DRUGS (3)
  1. PROVAS [Suspect]
     Dosage: 20 DF, ONCE/SINGLE
     Route: 048
     Dates: start: 20110313, end: 20110313
  2. LORAZEPAM [Suspect]
     Dosage: 20 DF, ONCE/SINGLE
     Route: 048
     Dates: start: 20110313, end: 20110313
  3. BELOC ZOK [Suspect]
     Dosage: 20 DF, ONCE/SINGLE
     Route: 048
     Dates: start: 20110313, end: 20110313

REACTIONS (3)
  - SOMNOLENCE [None]
  - DRUG ABUSE [None]
  - SUICIDE ATTEMPT [None]
